FAERS Safety Report 23717542 (Version 2)
Quarter: 2024Q2

REPORT INFORMATION
  Report Type: Spontaneous
  Country: PL (occurrence: PL)
  Receive Date: 20240408
  Receipt Date: 20240412
  Transmission Date: 20240716
  Serious: Yes (Other)
  Sender: FDA-Public Use
  Company Number: PL-002147023-NVSC2024PL073074

PATIENT
  Sex: Male

DRUGS (1)
  1. LUTATHERA [Suspect]
     Active Substance: LUTETIUM OXODOTREOTIDE LU-177
     Indication: Lung neoplasm malignant
     Dosage: UNK
     Route: 065

REACTIONS (3)
  - Lung neoplasm malignant [Unknown]
  - Malignant neoplasm progression [Unknown]
  - Off label use [Unknown]
